FAERS Safety Report 5814390-6 (Version None)
Quarter: 2008Q3

REPORT INFORMATION
  Report Type: 
  Country: None (occurrence: None)
  Receive Date: 20080718
  Receipt Date: 20080708
  Transmission Date: 20090109
  Serious: Yes (Other)
  Sender: FDA-Public Use
  Company Number: US-JNJFOC-20080702457

PATIENT
  Sex: Male
  Weight: 181.44 kg

DRUGS (1)
  1. REMICADE [Suspect]
     Indication: PSORIASIS
     Dosage: INFUSIONS FOR 4-5 YEARS ON UNKNOWN DATES
     Route: 042

REACTIONS (2)
  - DEPRESSION [None]
  - DRUG INEFFECTIVE [None]
